FAERS Safety Report 6375732-9 (Version None)
Quarter: 2009Q3

REPORT INFORMATION
  Report Type: 
  Country: None (occurrence: None)
  Receive Date: 20090922
  Receipt Date: 20090922
  Transmission Date: 20100115
  Serious: No
  Sender: FDA-Public Use
  Company Number: None

PATIENT
  Age: 70 Year
  Sex: Female
  Weight: 53.978 kg

DRUGS (8)
  1. GALANTAMINE HYDROBROMIDE [Suspect]
     Indication: DEMENTIA ALZHEIMER'S TYPE
     Dosage: 2 MG BID PO
     Route: 048
     Dates: start: 20090611, end: 20090624
  2. GALANTAMINE HYDROBROMIDE [Suspect]
     Dosage: 4 MG BID PO
     Route: 048
     Dates: start: 20090625, end: 20090917
  3. CITALOPRAM [Concomitant]
  4. COLACE -DOCUSATE SODIUM- [Concomitant]
  5. ASPIRIN [Concomitant]
  6. SIMVASTATIN [Concomitant]
  7. IRON SUPPLEMENT -FESO4- [Concomitant]
  8. VITAMIN B-12 [Concomitant]

REACTIONS (1)
  - ALOPECIA [None]
